FAERS Safety Report 7805330-9 (Version None)
Quarter: 2011Q4

REPORT INFORMATION
  Report Type: 
  Country: None (occurrence: None)
  Receive Date: 20111010
  Receipt Date: 20110930
  Transmission Date: 20120403
  Serious: Yes (Other)
  Sender: FDA-Public Use
  Company Number: BR-ASTRAZENECA-2011SE59001

PATIENT
  Age: 77 Year
  Sex: Female

DRUGS (10)
  1. CITONEURIN [Concomitant]
     Route: 048
  2. CEBRALAT [Concomitant]
     Route: 048
  3. METOPROLOL SUCCINATE [Suspect]
     Route: 048
  4. ANLO [Concomitant]
     Route: 048
  5. DAFLON [Concomitant]
     Route: 048
  6. OLMETEC HCT [Concomitant]
     Indication: HYPERTENSION
     Dosage: 40/12.5 MG
     Route: 048
  7. OMEPRAZOLE [Suspect]
     Route: 048
  8. VECASTEN [Concomitant]
     Route: 048
  9. CRESTOR [Suspect]
     Indication: HYPERCHOLESTEROLAEMIA
     Route: 048
  10. THIAMINE HYDROCHLORIDE [Concomitant]
     Route: 048

REACTIONS (2)
  - BLOOD PRESSURE INADEQUATELY CONTROLLED [None]
  - ARTERIAL INJURY [None]
